FAERS Safety Report 5379361-5 (Version None)
Quarter: 2007Q3

REPORT INFORMATION
  Report Type: 
  Country: None (occurrence: None)
  Receive Date: 20070705
  Receipt Date: 20070627
  Transmission Date: 20080115
  Serious: Yes (Hospitalization, Congenital Anomaly)
  Sender: FDA-Public Use
  Company Number: US-ABBOTT-07P-163-0373207-00

PATIENT
  Sex: Female

DRUGS (4)
  1. KALETRA [Suspect]
     Indication: DRUG EXPOSURE DURING PREGNANCY
     Dosage: 200 - 50
     Route: 048
     Dates: start: 20060518, end: 20060822
  2. KALETRA [Suspect]
     Dosage: 200 - 50
     Route: 048
     Dates: start: 20060822, end: 20061201
  3. LAMIVUDINE + ZIDOVUDINE [Concomitant]
     Indication: DRUG EXPOSURE DURING PREGNANCY
     Dosage: 150 - 300
     Route: 048
     Dates: start: 20060518, end: 20061201
  4. STAVUDINE [Concomitant]
     Indication: DRUG EXPOSURE DURING PREGNANCY
     Route: 048
     Dates: start: 20060822, end: 20061201

REACTIONS (1)
  - VENTRICULAR SEPTAL DEFECT [None]
